FAERS Safety Report 9531105 (Version 2)
Quarter: 2013Q3

REPORT INFORMATION
  Report Type: Report from Study
  Country: AT (occurrence: AT)
  Receive Date: 20130918
  Receipt Date: 20130918
  Transmission Date: 20140515
  Serious: Yes (Other)
  Sender: FDA-Public Use
  Company Number: AT-ACCORD-019476

PATIENT
  Age: 2 Year
  Sex: Male

DRUGS (6)
  1. ETOPOSIDE [Suspect]
     Indication: ACUTE MONOCYTIC LEUKAEMIA
  2. CLADRIBINE [Suspect]
     Indication: ACUTE MONOCYTIC LEUKAEMIA
  3. MITOXANTRONE [Suspect]
     Indication: ACUTE MONOCYTIC LEUKAEMIA
  4. CYTARABINE [Suspect]
     Indication: ACUTE MONOCYTIC LEUKAEMIA
  5. IDARUBICIN [Suspect]
     Indication: ACUTE MONOCYTIC LEUKAEMIA
  6. DAUNORUBICIN [Suspect]
     Indication: ACUTE MONOCYTIC LEUKAEMIA

REACTIONS (2)
  - Histiocytosis haematophagic [Recovered/Resolved]
  - Off label use [Unknown]
